FAERS Safety Report 25200484 (Version 1)
Quarter: 2025Q2

REPORT INFORMATION
  Report Type: Spontaneous
  Country: US (occurrence: US)
  Receive Date: 20250415
  Receipt Date: 20250415
  Transmission Date: 20250717
  Serious: No
  Sender: CALLIDITAS THERAPEUTICS
  Company Number: US-Calliditas-2025CAL00970

PATIENT
  Age: 54 Year
  Sex: Male

DRUGS (13)
  1. TARPEYO [Suspect]
     Active Substance: BUDESONIDE
     Indication: IgA nephropathy
     Dosage: TAKE 4 CAPSULES (16 MG) BY MOUTH ONCE DAILY.
     Route: 048
  2. ALLOPURINOL [Concomitant]
     Active Substance: ALLOPURINOL
  3. CALCITRIOL [Concomitant]
     Active Substance: CALCITRIOL
  4. CALCIUM ACETATE [Concomitant]
     Active Substance: CALCIUM ACETATE
  5. EXCEDRIN MIGRAINE [Concomitant]
     Active Substance: ACETAMINOPHEN\ASPIRIN\CAFFEINE
  6. PATIROMER [Concomitant]
     Active Substance: PATIROMER
  7. QUESTRAN [CARBOPROST TROMETAMOL] [Concomitant]
  8. RENAGEL [Concomitant]
     Active Substance: SEVELAMER HYDROCHLORIDE
  9. SENSIPAR [Concomitant]
     Active Substance: CINACALCET HYDROCHLORIDE
  10. SILDENAFIL [Concomitant]
     Active Substance: SILDENAFIL
  11. SODIUM BICARBONATE [Concomitant]
     Active Substance: SODIUM BICARBONATE
  12. SPARSENTAN [Concomitant]
     Active Substance: SPARSENTAN
  13. TRENTAL [Concomitant]
     Active Substance: PENTOXIFYLLINE

REACTIONS (1)
  - Headache [Recovered/Resolved]
